FAERS Safety Report 10236302 (Version 1)
Quarter: 2014Q2

REPORT INFORMATION
  Report Type: Spontaneous
  Country: FI (occurrence: FI)
  Receive Date: 20140613
  Receipt Date: 20140613
  Transmission Date: 20141212
  Serious: No
  Sender: FDA-Public Use
  Company Number: FI-JNJFOC-20140600284

PATIENT
  Sex: Female

DRUGS (8)
  1. DUROGESIC [Suspect]
     Indication: NEURALGIA
     Route: 062
  2. NEXIUM [Concomitant]
     Route: 065
  3. ARCOXIA [Concomitant]
     Route: 065
  4. GABAPENTIN [Concomitant]
     Route: 065
  5. OXYCONTIN [Concomitant]
     Route: 065
  6. OXYNORM [Concomitant]
     Route: 065
  7. CYMBALTA [Concomitant]
     Route: 065
  8. NORFLEX (ORPHENADRINE CITRATE) [Concomitant]
     Route: 065

REACTIONS (4)
  - Pain [Unknown]
  - Poor quality drug administered [Unknown]
  - Product quality issue [Unknown]
  - Drug ineffective [Unknown]
